FAERS Safety Report 21822157 (Version 8)
Quarter: 2023Q2

REPORT INFORMATION
  Report Type: Report from Study
  Country: US (occurrence: US)
  Receive Date: 20230105
  Receipt Date: 20230511
  Transmission Date: 20230722
  Serious: No
  Sender: FDA-Public Use
  Company Number: US-002147023-NVSC2023US002036

PATIENT
  Sex: Male

DRUGS (3)
  1. ENTRESTO [Suspect]
     Active Substance: SACUBITRIL\VALSARTAN
     Indication: Cardiac failure chronic
     Dosage: 1 DOSAGE FORM (24/26 MG)
     Route: 048
     Dates: start: 202209
  2. ENTRESTO [Suspect]
     Active Substance: SACUBITRIL\VALSARTAN
     Dosage: UNK  (RESTARTED)
     Route: 065
  3. CLARITIN [Concomitant]
     Active Substance: LORATADINE
     Indication: Product used for unknown indication
     Dosage: UNK
     Route: 065

REACTIONS (16)
  - Cough [Unknown]
  - Weight increased [Unknown]
  - Confusional state [Unknown]
  - Swelling face [Unknown]
  - Facial pain [Not Recovered/Not Resolved]
  - Nasal oedema [Unknown]
  - Arthralgia [Unknown]
  - Dry skin [Unknown]
  - Pruritus [Unknown]
  - Dysphagia [Unknown]
  - Lip swelling [Unknown]
  - Lip pain [Unknown]
  - Weight decreased [Unknown]
  - Peripheral swelling [Unknown]
  - Sinusitis [Recovering/Resolving]
  - Hypotension [Unknown]
